FAERS Safety Report 13392825 (Version 1)
Quarter: 2017Q1

REPORT INFORMATION
  Report Type: Report from Study
  Country: CA (occurrence: CA)
  Receive Date: 20170331
  Receipt Date: 20170331
  Transmission Date: 20170429
  Serious: Yes (Hospitalization)
  Sender: FDA-Public Use
  Company Number: CA-JNJFOC-20170328243

PATIENT
  Age: 78 Year
  Sex: Male
  Weight: 83.92 kg

DRUGS (4)
  1. CORTEF [Concomitant]
     Active Substance: HYDROCORTISONE
     Route: 065
  2. SORIATANE [Concomitant]
     Active Substance: ACITRETIN
     Route: 065
  3. CEFALEXIN [Concomitant]
     Active Substance: CEPHALEXIN
     Route: 048
  4. STELARA [Suspect]
     Active Substance: USTEKINUMAB
     Indication: PSORIASIS
     Dosage: AT WEEK 0, 4, 16, 28 AND 40
     Route: 058
     Dates: start: 20170222

REACTIONS (1)
  - Cellulitis [Unknown]

NARRATIVE: CASE EVENT DATE: 201702
